FAERS Safety Report 8461951-4 (Version None)
Quarter: 2012Q2

REPORT INFORMATION
  Report Type: 
  Country: None (occurrence: None)
  Receive Date: 20120625
  Receipt Date: 20120614
  Transmission Date: 20120825
  Serious: Yes (Death)
  Sender: FDA-Public Use
  Company Number: US-CELGENEUS-163-21880-11063860

PATIENT
  Sex: Female

DRUGS (8)
  1. CYTOXAN [Concomitant]
     Indication: MULTIPLE MYELOMA
     Route: 065
  2. ALLOPURINOL [Concomitant]
     Route: 065
  3. NEULASTA [Concomitant]
     Route: 065
  4. REVLIMID [Suspect]
     Indication: MULTIPLE MYELOMA
     Dosage: 15 MILLIGRAM
     Route: 048
     Dates: start: 20110531, end: 20110620
  5. MEPRON [Concomitant]
     Route: 065
  6. DEXAMETHASONE [Concomitant]
     Route: 065
  7. METOPROLOL TARTRATE [Concomitant]
     Route: 065
  8. NYSTATIN [Concomitant]
     Route: 065

REACTIONS (2)
  - SEPSIS [None]
  - MULTIPLE MYELOMA [None]
